FAERS Safety Report 5679907-3 (Version None)
Quarter: 2008Q1

REPORT INFORMATION
  Report Type: 
  Country: None (occurrence: None)
  Receive Date: 20080324
  Receipt Date: 20080318
  Transmission Date: 20080703
  Serious: Yes (Other)
  Sender: FDA-Public Use
  Company Number: 2008SP003417

PATIENT
  Age: 1 Day
  Sex: Male
  Weight: 2.5401 kg

DRUGS (1)
  1. NASONEX (MOMETGASONE FUROATE (NASAL)) (MOMETASONE FUROATE) [Suspect]
     Indication: SINUSITIS
     Dosage: TRPL
     Route: 064

REACTIONS (2)
  - DRUG EXPOSURE DURING PREGNANCY [None]
  - PREMATURE BABY [None]
